FAERS Safety Report 7129342-6 (Version None)
Quarter: 2010Q4

REPORT INFORMATION
  Report Type: 
  Country: None (occurrence: None)
  Receive Date: 20101130
  Receipt Date: 20101117
  Transmission Date: 20110411
  Serious: Yes (Hospitalization)
  Sender: FDA-Public Use
  Company Number: DE-WATSON-2010-15251

PATIENT
  Age: 75 Year
  Sex: Female
  Weight: 60 kg

DRUGS (5)
  1. RAMIPRIL [Suspect]
     Indication: HYPERTENSION
     Dosage: 10 MG, DAILY
     Route: 048
     Dates: start: 20060601
  2. CITALOPRAM HYDROBROMIDE [Suspect]
     Indication: NORMAL PRESSURE HYDROCEPHALUS
     Dosage: 20 MG, UNKNOWN
     Route: 048
     Dates: start: 20080201, end: 20081201
  3. BISOPROLOL FUMARATE AND HYDROCHLOROTHIAZIDE [Suspect]
     Indication: HYPERTENSION
     Dosage: 1 DF, UNKNOWN
     Route: 048
     Dates: start: 20060601, end: 20081201
  4. METFORMIN [Concomitant]
     Indication: TYPE 2 DIABETES MELLITUS
     Dosage: 500 MG, UNK
     Route: 048
     Dates: start: 20070101
  5. MELPERONE [Concomitant]
     Indication: NORMAL PRESSURE HYDROCEPHALUS
     Dosage: 25 MG, UNK
     Route: 048
     Dates: start: 20080201

REACTIONS (2)
  - HYPOKALAEMIA [None]
  - HYPONATRAEMIA [None]
